FAERS Safety Report 13436275 (Version 3)
Quarter: 2017Q2

REPORT INFORMATION
  Report Type: Spontaneous
  Country: JP (occurrence: JP)
  Receive Date: 20170413
  Receipt Date: 20170425
  Transmission Date: 20170830
  Serious: Yes (Hospitalization, Other)
  Sender: FDA-Public Use
  Company Number: JP-PFIZER INC-2017154494

PATIENT
  Age: 50 Year
  Sex: Female

DRUGS (11)
  1. INFLIXIMAB [Suspect]
     Active Substance: INFLIXIMAB
     Dosage: 200 MG/BODY/DAY
     Route: 042
     Dates: start: 20160523, end: 20160523
  2. PREDNISOLONE. [Suspect]
     Active Substance: PREDNISOLONE
     Dosage: 2 MG, UNK
     Route: 048
     Dates: start: 20160907, end: 20161202
  3. INFLIXIMAB [Suspect]
     Active Substance: INFLIXIMAB
     Dosage: 200 MG/BODY/DAY
     Route: 042
     Dates: start: 20160907, end: 20160907
  4. INFLIXIMAB [Suspect]
     Active Substance: INFLIXIMAB
     Dosage: 200 MG/BODY/DAY
     Route: 042
     Dates: start: 20161031, end: 20161031
  5. METHOTREXATE SODIUM. [Suspect]
     Active Substance: METHOTREXATE SODIUM
     Indication: RHEUMATOID ARTHRITIS
     Dosage: 10 MG, UNK
     Route: 048
  6. INFLIXIMAB [Suspect]
     Active Substance: INFLIXIMAB
     Dosage: 200 MG/BODY/DAY
     Route: 042
     Dates: start: 20160425, end: 20160425
  7. METHOTREXATE SODIUM. [Suspect]
     Active Substance: METHOTREXATE SODIUM
     Dosage: 8 MG, UNK
     Route: 048
  8. INFLIXIMAB [Suspect]
     Active Substance: INFLIXIMAB
     Indication: RHEUMATOID ARTHRITIS
     Dosage: 200 MG/BODY/DAY
     Route: 042
     Dates: start: 20160411, end: 20160411
  9. INFLIXIMAB [Suspect]
     Active Substance: INFLIXIMAB
     Dosage: 200 MG/BODY/DAY
     Route: 042
     Dates: start: 20160711, end: 20160711
  10. INFLIXIMAB [Suspect]
     Active Substance: INFLIXIMAB
     Dosage: 200 MG/BODY/DAY
     Route: 042
  11. PREDNISOLONE. [Suspect]
     Active Substance: PREDNISOLONE
     Indication: RHEUMATOID ARTHRITIS
     Dosage: 4 MG, UNK
     Route: 048
     Dates: start: 20160229, end: 20160906

REACTIONS (1)
  - Organising pneumonia [Recovering/Resolving]

NARRATIVE: CASE EVENT DATE: 20161126
